FAERS Safety Report 7681122-9 (Version None)
Quarter: 2011Q3

REPORT INFORMATION
  Report Type: 
  Country: None (occurrence: None)
  Receive Date: 20110812
  Receipt Date: 20110811
  Transmission Date: 20111222
  Serious: No
  Sender: FDA-Public Use
  Company Number: US-PFIZER INC-2011185051

PATIENT
  Sex: Female
  Weight: 53.5 kg

DRUGS (6)
  1. CRESTOR [Concomitant]
     Indication: BLOOD CHOLESTEROL ABNORMAL
     Dosage: 5 MG, DAILY
     Route: 048
     Dates: start: 20110101
  2. LEXAPRO [Concomitant]
     Indication: PANIC ATTACK
  3. MEDROXYPROGESTERONE [Concomitant]
     Indication: MENOPAUSE
     Dosage: 2.5 MG, DAILY
     Dates: start: 20070101
  4. LEXAPRO [Concomitant]
     Indication: ANXIETY
     Dosage: 10 MG, DAILY
     Dates: start: 20080101
  5. CHANTIX [Suspect]
     Indication: SMOKING CESSATION THERAPY
     Dosage: 0.5 MG, DAILY
     Route: 048
     Dates: start: 20110801
  6. ESTRADIOL [Concomitant]
     Indication: MENOPAUSE
     Dosage: 0.5 MG, DAILY
     Route: 048
     Dates: start: 20070101

REACTIONS (3)
  - FATIGUE [None]
  - CONSTIPATION [None]
  - NAUSEA [None]
